FAERS Safety Report 7993551-4 (Version None)
Quarter: 2011Q4

REPORT INFORMATION
  Report Type: 
  Country: None (occurrence: None)
  Receive Date: 20111219
  Receipt Date: 20111208
  Transmission Date: 20120403
  Serious: Yes (Other)
  Sender: FDA-Public Use
  Company Number: US-ASTRAZENECA-2011SE43434

PATIENT
  Age: 83 Year
  Sex: Female

DRUGS (3)
  1. TAMOXIFEN [Concomitant]
     Route: 048
  2. CRESTOR [Concomitant]
     Route: 048
  3. ARIMIDEX [Suspect]
     Route: 048

REACTIONS (5)
  - LYMPHOMA [None]
  - THERAPEUTIC RESPONSE UNEXPECTED [None]
  - HYPERTENSION [None]
  - METASTASES TO LYMPH NODES [None]
  - BREAST CANCER METASTATIC [None]
